FAERS Safety Report 6982913-X (Version None)
Quarter: 2010Q3

REPORT INFORMATION
  Report Type: 
  Country: None (occurrence: None)
  Receive Date: 20100914
  Receipt Date: 20100426
  Transmission Date: 20110219
  Serious: No
  Sender: FDA-Public Use
  Company Number: US-PFIZER INC-2010052744

PATIENT
  Sex: Female
  Weight: 54 kg

DRUGS (2)
  1. LYRICA [Suspect]
     Indication: NEUROPATHY PERIPHERAL
     Dosage: 25 MG, 2X/DAY
     Route: 048
     Dates: start: 20100201, end: 20100424
  2. HYDROXYZINE HCL [Suspect]
     Dosage: 25 MG, 3X/DAY
     Dates: start: 20100401, end: 20100401

REACTIONS (3)
  - DRUG INEFFECTIVE [None]
  - RASH [None]
  - URTICARIA [None]
